FAERS Safety Report 11361802 (Version 1)
Quarter: 2015Q3

REPORT INFORMATION
  Report Type: Report from Study
  Country: BR (occurrence: BR)
  Receive Date: 20150810
  Receipt Date: 20150810
  Transmission Date: 20151125
  Serious: Yes (Other)
  Sender: FDA-Public Use
  Company Number: BR-BAXALTA-2015BLT000844

PATIENT
  Sex: Male

DRUGS (1)
  1. FACTOR VIII INHIBITOR BYPASSING FRACTION UNSPECIFIED [Suspect]
     Active Substance: ANTI-INHIBITOR COAGULANT COMPLEX
     Indication: HAEMOPHILIA

REACTIONS (1)
  - Drug ineffective [Unknown]
